FAERS Safety Report 7832152-5 (Version None)
Quarter: 2011Q4

REPORT INFORMATION
  Report Type: 
  Country: None (occurrence: None)
  Receive Date: 20111022
  Receipt Date: 20100414
  Transmission Date: 20120403
  Serious: No
  Sender: FDA-Public Use
  Company Number: US-BAYER-201020283NA

PATIENT

DRUGS (1)
  1. CIPRO [Suspect]
     Indication: DIVERTICULITIS
     Route: 050

REACTIONS (1)
  - DEVICE OCCLUSION [None]
